FAERS Safety Report 5132336-3 (Version None)
Quarter: 2006Q4

REPORT INFORMATION
  Report Type: 
  Country: None (occurrence: None)
  Receive Date: 20061023
  Receipt Date: 20061010
  Transmission Date: 20070319
  Serious: Yes (Hospitalization)
  Sender: FDA-Public Use
  Company Number: PHRM2006FR02800

PATIENT
  Age: 90 Year
  Sex: Female

DRUGS (2)
  1. ESIDRIX [Suspect]
     Route: 048
  2. ATACAND [Suspect]
     Dosage: 8 MG, QD
     Route: 048
     Dates: end: 20060722

REACTIONS (6)
  - ASTHENIA [None]
  - BLOOD CREATININE INCREASED [None]
  - CONFUSIONAL STATE [None]
  - HYPERKALAEMIA [None]
  - HYPONATRAEMIA [None]
  - RENAL FAILURE [None]
